FAERS Safety Report 19704112 (Version 1)
Quarter: 2021Q3

REPORT INFORMATION
  Report Type: Spontaneous
  Country: US (occurrence: US)
  Receive Date: 20210814
  Receipt Date: 20210814
  Transmission Date: 20211014
  Serious: Yes (Other)
  Sender: FDA-Public Use
  Company Number: None

PATIENT
  Age: 70 Year
  Sex: Female
  Weight: 86.85 kg

DRUGS (1)
  1. CRESTOR [Suspect]
     Active Substance: ROSUVASTATIN CALCIUM
     Dosage: ?          QUANTITY:0.5 TABLET(S);OTHER FREQUENCY:3 TIMES A WEEK;?
     Route: 048
     Dates: start: 20180101, end: 20210101

REACTIONS (7)
  - Formication [None]
  - Muscle spasms [None]
  - Abdominal pain [None]
  - Drug intolerance [None]
  - Muscle twitching [None]
  - Depression [None]
  - Diarrhoea [None]

NARRATIVE: CASE EVENT DATE: 20210101
